FAERS Safety Report 7116175-X (Version None)
Quarter: 2010Q4

REPORT INFORMATION
  Report Type: 
  Country: None (occurrence: None)
  Receive Date: 20101122
  Receipt Date: 20101115
  Transmission Date: 20110411
  Serious: Yes (Death)
  Sender: FDA-Public Use
  Company Number: PHHY2009AR66982

PATIENT
  Sex: Female

DRUGS (3)
  1. CLOZAPINE [Suspect]
     Dosage: 25 MG, UNK
     Dates: start: 20060412
  2. AKINETON [Concomitant]
  3. AMPLIACTIL [Concomitant]

REACTIONS (1)
  - CARDIO-RESPIRATORY ARREST [None]
